FAERS Safety Report 20783436 (Version 1)
Quarter: 2022Q2

REPORT INFORMATION
  Report Type: Report from Study
  Country: CA (occurrence: CA)
  Receive Date: 20220504
  Receipt Date: 20220504
  Transmission Date: 20220720
  Serious: Yes (Other)
  Sender: FDA-Public Use
  Company Number: CA-NOVARTISPH-NVSC2022CA045963

PATIENT
  Sex: Male

DRUGS (1)
  1. ELTROMBOPAG OLAMINE [Suspect]
     Active Substance: ELTROMBOPAG OLAMINE
     Indication: Immune thrombocytopenia
     Dosage: 100 MG, QD
     Route: 048
     Dates: start: 202110

REACTIONS (7)
  - Lymphoma [Unknown]
  - Lung neoplasm malignant [Unknown]
  - Contusion [Unknown]
  - Nervous system disorder [Unknown]
  - Epistaxis [Unknown]
  - Incorrect dose administered [Unknown]
  - Platelet count decreased [Unknown]
